FAERS Safety Report 12612616 (Version 1)
Quarter: 2016Q3

REPORT INFORMATION
  Report Type: Spontaneous
  Country: DE (occurrence: DE)
  Receive Date: 20160801
  Receipt Date: 20160801
  Transmission Date: 20161109
  Serious: Yes (Life-Threatening, Disabling)
  Sender: FDA-Public Use
  Company Number: DE-ALLERGAN-1664308US

PATIENT
  Age: 54 Year
  Sex: Male

DRUGS (2)
  1. OMEPRAZOLE. [Suspect]
     Active Substance: OMEPRAZOLE
     Indication: OESOPHAGITIS
     Dosage: 2 DF, QD
     Route: 048
     Dates: start: 19910630
  2. SUCRALFATE UNK [Suspect]
     Active Substance: SUCRALFATE
     Indication: OESOPHAGITIS
     Dosage: 4 DF, QD
     Route: 048
     Dates: start: 19910630

REACTIONS (4)
  - Renal pain [Unknown]
  - Dizziness [Unknown]
  - Angiopathy [Unknown]
  - Nausea [Unknown]

NARRATIVE: CASE EVENT DATE: 19910630
